APPROVED DRUG PRODUCT: DEMI-REGROTON
Active Ingredient: CHLORTHALIDONE; RESERPINE
Strength: 25MG;0.125MG
Dosage Form/Route: TABLET;ORAL
Application: N015103 | Product #002
Applicant: SANOFI AVENTIS US LLC
Approved: Approved Prior to Jan 1, 1982 | RLD: No | RS: No | Type: DISCN